FAERS Safety Report 13314118 (Version 2)
Quarter: 2017Q2

REPORT INFORMATION
  Report Type: Report from Study
  Country: CA (occurrence: CA)
  Receive Date: 20170309
  Receipt Date: 20170512
  Transmission Date: 20170830
  Serious: Yes (Other)
  Sender: FDA-Public Use
  Company Number: CA-JNJFOC-20170307460

PATIENT
  Age: 71 Year
  Sex: Male
  Weight: 85.5 kg

DRUGS (5)
  1. ASA [Concomitant]
     Active Substance: ASPIRIN
     Route: 048
  2. REMICADE [Suspect]
     Active Substance: INFLIXIMAB
     Indication: COLITIS ULCERATIVE
     Route: 042
     Dates: start: 20161031
  3. CRESTOR [Concomitant]
     Active Substance: ROSUVASTATIN CALCIUM
     Route: 048
  4. IRON [Concomitant]
     Active Substance: IRON
     Route: 065
  5. COBALAMIN [Concomitant]
     Active Substance: COBALAMIN
     Route: 048

REACTIONS (4)
  - Colostomy [Recovering/Resolving]
  - Stoma site rash [Recovering/Resolving]
  - Rash erythematous [Recovering/Resolving]
  - Urticaria [Recovering/Resolving]

NARRATIVE: CASE EVENT DATE: 20170206
